FAERS Safety Report 9425051 (Version 1)
Quarter: 2013Q3

REPORT INFORMATION
  Report Type: Spontaneous
  Country: CN (occurrence: CN)
  Receive Date: 20130729
  Receipt Date: 20130729
  Transmission Date: 20140515
  Serious: Yes (Other)
  Sender: FDA-Public Use
  Company Number: CN-PFIZER INC-2013217113

PATIENT
  Age: 58 Year
  Sex: Female

DRUGS (7)
  1. ADRIAMYCIN [Suspect]
     Indication: PLASMA CELL MYELOMA
     Dosage: REGIMEN 6 TIMES
  2. DEXAMETHASONE SODIUM PHOSPHATE [Suspect]
     Indication: PLASMA CELL MYELOMA
     Dosage: REGIMEN 6 TIMES
  3. VINCRISTINE [Suspect]
     Indication: PLASMA CELL MYELOMA
     Dosage: REGIMEN 6 TIMES
  4. CYCLOPHOSPHAMIDE [Suspect]
     Indication: PLASMA CELL MYELOMA
     Dosage: ONCE
  5. CHLORAMBUCIL [Suspect]
     Indication: PLASMA CELL MYELOMA
     Dosage: ONCE
  6. PREDNISONE [Suspect]
     Indication: PLASMA CELL MYELOMA
     Dosage: ONCE
  7. CARMUSTINE [Suspect]
     Indication: PLASMA CELL MYELOMA
     Dosage: ONCE

REACTIONS (1)
  - Diabetes mellitus [Not Recovered/Not Resolved]
